FAERS Safety Report 6655511-5 (Version None)
Quarter: 2010Q1

REPORT INFORMATION
  Report Type: 
  Country: None (occurrence: None)
  Receive Date: 20100317
  Receipt Date: 20100107
  Transmission Date: 20100710
  Serious: No
  Sender: FDA-Public Use
  Company Number: DSA_42304_2010

PATIENT
  Sex: Female

DRUGS (5)
  1. XENAZINE [Suspect]
     Indication: TOURETTE'S DISORDER
     Dosage: 25 MG, 1/2 OF 25 MG TABLET TWICE DAILY
     Dates: start: 20090722
  2. ATIVAN [Concomitant]
  3. TOPAMAX [Concomitant]
  4. LAMICTAL [Concomitant]
  5. ALBUTEROL [Concomitant]

REACTIONS (3)
  - AGGRESSION [None]
  - AGITATION [None]
  - ANGER [None]
